FAERS Safety Report 6189486-2 (Version None)
Quarter: 2009Q2

REPORT INFORMATION
  Report Type: 
  Country: None (occurrence: None)
  Receive Date: 20090512
  Receipt Date: 20090506
  Transmission Date: 20091009
  Serious: Yes (Other)
  Sender: FDA-Public Use
  Company Number: 2009SP008747

PATIENT
  Age: 36 Year
  Sex: Male
  Weight: 94 kg

DRUGS (6)
  1. INTRON A [Suspect]
     Indication: MALIGNANT MELANOMA
     Dosage: ; TIW; SC
     Route: 058
     Dates: start: 20081103
  2. PAXIL [Concomitant]
  3. TYLENOL [Concomitant]
  4. STEMETIL /00013301/ [Concomitant]
  5. TYLENOL W/ CODEINE NO. 3 [Concomitant]
  6. PERCOCET [Concomitant]

REACTIONS (1)
  - OSTEONECROSIS [None]
